FAERS Safety Report 10045017 (Version 1)
Quarter: 2014Q1

REPORT INFORMATION
  Report Type: Report from Study
  Country: JP (occurrence: JP)
  Receive Date: 20140328
  Receipt Date: 20140328
  Transmission Date: 20141002
  Serious: Yes (Hospitalization)
  Sender: FDA-Public Use
  Company Number: JP-TAKEDA-2014TJP004291

PATIENT
  Age: 60 Year
  Sex: Female
  Weight: 69 kg

DRUGS (9)
  1. PIOGLITAZONE [Suspect]
     Indication: TYPE 2 DIABETES MELLITUS
     Dosage: 15 MG, 1 DAYS
     Route: 048
     Dates: start: 20121214, end: 20130710
  2. ECARD COMBINATION TABLETS HD [Concomitant]
     Dosage: 1 DF, QD
     Route: 048
  3. NOVORAPID 30 MIX FLEXPEN [Concomitant]
     Indication: TYPE 2 DIABETES MELLITUS
     Dosage: 70 IU, BID
     Route: 050
     Dates: start: 20111021, end: 20121213
  4. NOVORAPID 30 MIX FLEXPEN [Concomitant]
     Dosage: 66 IU, BID
     Route: 050
     Dates: start: 20121214, end: 20130110
  5. NOVORAPID 30 MIX FLEXPEN [Concomitant]
     Dosage: 60 IU, BID
     Route: 050
     Dates: start: 20130111, end: 20130207
  6. NOVORAPID 30 MIX FLEXPEN [Concomitant]
     Dosage: 50 IU, BID
     Route: 050
     Dates: start: 20130208, end: 20130307
  7. NOVORAPID 30 MIX FLEXPEN [Concomitant]
     Dosage: 46 IU, BID
     Route: 050
     Dates: start: 20130308
  8. JANUVIA [Concomitant]
     Indication: TYPE 2 DIABETES MELLITUS
     Dosage: 50 MG, 1 DAYS
     Route: 048
     Dates: start: 20121012
  9. ATELEC [Concomitant]
     Dosage: 10 MG, QD
     Route: 048

REACTIONS (5)
  - Spinal ligament ossification [Recovering/Resolving]
  - Condition aggravated [Recovering/Resolving]
  - Hypoglycaemia [Recovered/Resolved]
  - Hypoglycaemia [Recovered/Resolved]
  - Hypoglycaemia [Recovered/Resolved]
